FAERS Safety Report 10833727 (Version 2)
Quarter: 2015Q4

REPORT INFORMATION
  Report Type: Spontaneous
  Country: GB (occurrence: GB)
  Receive Date: 20150219
  Receipt Date: 20151001
  Transmission Date: 20160304
  Serious: Yes (Death, Hospitalization, Other)
  Sender: FDA-Public Use
  Company Number: GB-INCYTE CORPORATION-2015IN000655

PATIENT
  Age: 74 Year

DRUGS (1)
  1. JAKAFI [Suspect]
     Active Substance: RUXOLITINIB
     Indication: MYELOFIBROSIS
     Dosage: 20 MG, BID
     Route: 065

REACTIONS (6)
  - Adenocarcinoma of colon [Unknown]
  - Death [Fatal]
  - Mouth haemorrhage [Recovered/Resolved]
  - Second primary malignancy [Unknown]
  - Large intestine perforation [Unknown]
  - Post procedural haemorrhage [Unknown]
